FAERS Safety Report 9064992 (Version 2)
Quarter: 2014Q4

REPORT INFORMATION
  Report Type: Report from Study
  Country: US (occurrence: US)
  Receive Date: 20130206
  Receipt Date: 20141219
  Transmission Date: 20150529
  Serious: Yes (Death, Other)
  Sender: FDA-Public Use
  Company Number: US-ROCHE-627083

PATIENT
  Sex: Female

DRUGS (2)
  1. BEVACIZUMAB [Suspect]
     Active Substance: BEVACIZUMAB
     Indication: BREAST CANCER METASTATIC
     Route: 042
  2. CAPECITABINE. [Suspect]
     Active Substance: CAPECITABINE
     Indication: BREAST CANCER METASTATIC
     Dosage: ADMINISTERED FOR DAY 1-14 OF 21 DAY CYCLE. REDUCED DOSE TO 1875 MG/M2/DAY IF CREATININE CLEARANCE 30
     Route: 048

REACTIONS (26)
  - Infection [Unknown]
  - Pulmonary embolism [Fatal]
  - Cardio-respiratory arrest [Fatal]
  - Nausea [Unknown]
  - Vomiting [Unknown]
  - Palmar-plantar erythrodysaesthesia syndrome [Unknown]
  - Thrombosis [Unknown]
  - Hypertension [Unknown]
  - Proteinuria [Unknown]
  - Thrombocytopenia [Unknown]
  - Headache [Unknown]
  - Pain [Unknown]
  - Dyspnoea [Unknown]
  - Pyrexia [Unknown]
  - Disease progression [Fatal]
  - Diarrhoea [Unknown]
  - Anaemia [Unknown]
  - Leukopenia [Unknown]
  - Cardiac failure congestive [Unknown]
  - Embolism [Unknown]
  - Haemorrhage [Unknown]
  - Stomatitis [Unknown]
  - Decreased appetite [Unknown]
  - Constipation [Unknown]
  - Cardiomyopathy [Unknown]
  - Asthenia [Unknown]
